FAERS Safety Report 16710961 (Version 2)
Quarter: 2019Q4

REPORT INFORMATION
  Report Type: Spontaneous
  Country: US (occurrence: US)
  Receive Date: 20190816
  Receipt Date: 20191101
  Transmission Date: 20200122
  Serious: No
  Sender: FDA-Public Use
  Company Number: US-BRISTOL-MYERS SQUIBB COMPANY-BMS-2019-080493

PATIENT
  Sex: Female
  Weight: 66.22 kg

DRUGS (1)
  1. OPDIVO [Suspect]
     Active Substance: NIVOLUMAB
     Indication: MALIGNANT MELANOMA STAGE III
     Dosage: UNK, Q2WK
     Route: 042
     Dates: start: 201811, end: 201904

REACTIONS (3)
  - Rash [Unknown]
  - Fatigue [Recovered/Resolved]
  - Pruritus [Unknown]
